FAERS Safety Report 5491596-X (Version None)
Quarter: 2007Q4

REPORT INFORMATION
  Report Type: 
  Country: None (occurrence: None)
  Receive Date: 20071019
  Receipt Date: 20071019
  Transmission Date: 20080405
  Serious: Yes (Other)
  Sender: FDA-Public Use
  Company Number: None

PATIENT
  Age: 55 Year
  Sex: Female

DRUGS (7)
  1. CARDIZEM [Suspect]
     Dates: start: 20060110, end: 20060317
  2. CYTOXAN [Suspect]
     Dates: start: 20051210, end: 20060326
  3. LISINOPRIL [Suspect]
     Dates: start: 20060311, end: 20060326
  4. PROTONIX [Concomitant]
  5. AMARYL [Concomitant]
  6. RENAL CAPS [Concomitant]
  7. STEROIDS [Concomitant]

REACTIONS (3)
  - BLOOD CHOLESTEROL INCREASED [None]
  - BLOOD TRIGLYCERIDES INCREASED [None]
  - HEPATITIS CHOLESTATIC [None]
